FAERS Safety Report 19964830 (Version 1)
Quarter: 2021Q4

REPORT INFORMATION
  Report Type: Report from Study
  Country: TR (occurrence: TR)
  Receive Date: 20211018
  Receipt Date: 20211018
  Transmission Date: 20220303
  Serious: Yes (Death)
  Sender: FDA-Public Use
  Company Number: TR-PFIZER INC-202101368354

PATIENT

DRUGS (3)
  1. METHOTREXATE SODIUM [Suspect]
     Active Substance: METHOTREXATE SODIUM
     Indication: Burkitt^s lymphoma
     Dosage: 1 G/M2/36 HOURS, CYCLIC
  2. LEUCOVORIN [Concomitant]
     Active Substance: LEUCOVORIN
     Indication: Evidence based treatment
     Dosage: 15 MG/M2
  3. VINCRISTINE [Concomitant]
     Active Substance: VINCRISTINE
     Indication: Burkitt^s lymphoma
     Dosage: 1.5 MG/M2

REACTIONS (2)
  - Sepsis [Fatal]
  - Febrile neutropenia [Fatal]
